FAERS Safety Report 6170348-1 (Version None)
Quarter: 2009Q2

REPORT INFORMATION
  Report Type: 
  Country: None (occurrence: None)
  Receive Date: 20090428
  Receipt Date: 20090420
  Transmission Date: 20091009
  Serious: Yes (Hospitalization)
  Sender: FDA-Public Use
  Company Number: US-MERCK-0904USA03192

PATIENT
  Age: 70 Year
  Sex: Female

DRUGS (4)
  1. SINGULAIR [Suspect]
     Indication: ASTHMA
     Route: 048
     Dates: start: 20040901, end: 20080101
  2. PNEUMOVAX 23 [Suspect]
     Route: 065
     Dates: start: 20041201
  3. PREDNISONE [Concomitant]
     Route: 065
  4. XALATAN [Concomitant]
     Route: 065
     Dates: start: 20050901

REACTIONS (13)
  - BACK PAIN [None]
  - EXOSTOSIS [None]
  - GAIT DISTURBANCE [None]
  - GLAUCOMA [None]
  - HERPES ZOSTER [None]
  - HYPERTENSION [None]
  - INFLUENZA [None]
  - LUNG INFECTION [None]
  - OEDEMA PERIPHERAL [None]
  - RENAL CYST [None]
  - SPONDYLITIS [None]
  - VEIN PAIN [None]
  - VISUAL IMPAIRMENT [None]
